FAERS Safety Report 15823988 (Version 1)
Quarter: 2019Q1

REPORT INFORMATION
  Report Type: Spontaneous
  Country: ES (occurrence: ES)
  Receive Date: 20190114
  Receipt Date: 20190114
  Transmission Date: 20190417
  Serious: Yes (Life-Threatening, Hospitalization, Other)
  Sender: FDA-Public Use
  Company Number: PHHY2019ES000899

PATIENT
  Age: 34 Year
  Sex: Female

DRUGS (7)
  1. PYRIDOXINE HYDROCHLORIDE. [Suspect]
     Active Substance: PYRIDOXINE HYDROCHLORIDE
     Indication: VOMITING
     Dosage: 10 MG, UNK
     Route: 065
  2. HYDROCORTISONE. [Suspect]
     Active Substance: HYDROCORTISONE
     Indication: URTICARIA
     Dosage: UNK
     Route: 065
  3. DEXCHLORPHENIRAMINE [Suspect]
     Active Substance: DEXCHLORPHENIRAMINE
     Indication: URTICARIA
     Route: 065
  4. DOXYLAMINE [Suspect]
     Active Substance: DOXYLAMINE
     Indication: VOMITING
     Dosage: 10 MG, UNK
     Route: 065
  5. CARIBAN [DOXYLAMINE SUCCINATE\PYRIDOXINE HYDROCHLORIDE] [Suspect]
     Active Substance: DOXYLAMINE SUCCINATE\PYRIDOXINE HYDROCHLORIDE
     Indication: VOMITING
     Route: 065
  6. PYRIDOXINE HYDROCHLORIDE. [Suspect]
     Active Substance: PYRIDOXINE HYDROCHLORIDE
     Dosage: 2 DF, QID, PRESCRIBED 4 TABLETS
     Route: 048
  7. DOXYLAMINE [Suspect]
     Active Substance: DOXYLAMINE
     Dosage: 25 MG, UNK
     Route: 048

REACTIONS (9)
  - Dizziness [Recovered/Resolved]
  - Hypotension [Unknown]
  - Drug hypersensitivity [Unknown]
  - Dyspnoea [Recovered/Resolved]
  - Product use in unapproved indication [Unknown]
  - Maternal exposure during pregnancy [Unknown]
  - Pruritus generalised [Recovered/Resolved]
  - Urticaria [Recovered/Resolved]
  - Anaphylactic reaction [Unknown]
